FAERS Safety Report 9196075 (Version 3)
Quarter: 2013Q2

REPORT INFORMATION
  Report Type: Spontaneous
  Country: DE (occurrence: DE)
  Receive Date: 20130328
  Receipt Date: 20130527
  Transmission Date: 20140414
  Serious: Yes (Other)
  Sender: FDA-Public Use
  Company Number: DE-AMGEN-DEUSP2013019820

PATIENT
  Sex: Female

DRUGS (3)
  1. PROLIA [Suspect]
     Indication: PRODUCT USED FOR UNKNOWN INDICATION
  2. PROLIA [Suspect]
  3. PROLIA [Suspect]

REACTIONS (7)
  - Tibia fracture [Unknown]
  - Meniscal degeneration [Unknown]
  - Meniscus injury [Unknown]
  - Joint effusion [Unknown]
  - Synovial cyst [Unknown]
  - Osteoarthritis [Unknown]
  - Arthralgia [Unknown]
